FAERS Safety Report 8849588 (Version 3)
Quarter: 2013Q2

REPORT INFORMATION
  Report Type: Spontaneous
  Country: IT (occurrence: IT)
  Receive Date: 20121019
  Receipt Date: 20130507
  Transmission Date: 20140414
  Serious: Yes (Hospitalization)
  Sender: FDA-Public Use
  Company Number: IT-UCBSA-068933

PATIENT
  Age: 84 Year
  Sex: Female

DRUGS (5)
  1. DEPONIT [Suspect]
     Indication: ANGINA PECTORIS
     Dosage: 15 TRANSDERMAL PATCHES
     Route: 062
     Dates: start: 20120601, end: 20120717
  2. ZOLOFT [Concomitant]
     Indication: DEPRESSION
     Dosage: DOSE : 50 MG , 30 DIVISIBLE FILM COATED TABLETS
     Dates: start: 20080211, end: 20120717
  3. GLURENOR [Concomitant]
     Indication: DIABETES MELLITUS
     Dosage: DOSE : 30 MG,  40 TABLETS
     Dates: start: 20080211, end: 20120717
  4. TENORMIN [Concomitant]
     Dosage: DOSE : 100 MG, 42 TABLETS
     Dates: start: 20080211, end: 20120717
  5. CARDIRENE [Concomitant]
     Indication: PLATELET AGGREGATION
     Dosage: DOSE : 75 MG ,30 SACHETS

REACTIONS (2)
  - Syncope [Recovered/Resolved]
  - Malaise [Recovered/Resolved]
